FAERS Safety Report 6314129-4 (Version None)
Quarter: 2009Q3

REPORT INFORMATION
  Report Type: 
  Country: None (occurrence: None)
  Receive Date: 20090818
  Receipt Date: 20090812
  Transmission Date: 20100115
  Serious: Yes (Death, Life-Threatening, Hospitalization)
  Sender: FDA-Public Use
  Company Number: PHHY2009AU24134

PATIENT

DRUGS (4)
  1. NEORAL [Suspect]
     Indication: LUNG TRANSPLANT
     Dosage: 300 MG, BID
     Route: 048
     Dates: start: 20090508, end: 20090616
  2. MYCOPHENOLATE MOFETIL [Concomitant]
     Dosage: UNK
     Dates: start: 20090508
  3. PREDNISOLONE [Concomitant]
     Dosage: 15 MG, QD
  4. ANTIBIOTICS [Concomitant]

REACTIONS (4)
  - ASPERGILLOSIS [None]
  - PLATELET COUNT DECREASED [None]
  - PNEUMONECTOMY [None]
  - PULMONARY HAEMORRHAGE [None]
